FAERS Safety Report 6168288-7 (Version None)
Quarter: 2009Q2

REPORT INFORMATION
  Report Type: 
  Country: None (occurrence: None)
  Receive Date: 20090423
  Receipt Date: 20090415
  Transmission Date: 20091009
  Serious: Yes (Hospitalization, Other)
  Sender: FDA-Public Use
  Company Number: 2009AP001442

PATIENT
  Age: 30 Year
  Sex: Female

DRUGS (4)
  1. FLUCONAZOLE [Suspect]
     Indication: ORAL CANDIDIASIS
  2. EFAVIRENZ [Concomitant]
  3. EMTRICITABINE [Concomitant]
  4. TENOFOVIR [Concomitant]

REACTIONS (6)
  - HYPOTENSION [None]
  - MYCOPLASMA INFECTION [None]
  - SEPSIS [None]
  - SKIN HYPERPIGMENTATION [None]
  - TACHYCARDIA [None]
  - TOXIC EPIDERMAL NECROLYSIS [None]
